FAERS Safety Report 8428182-5 (Version None)
Quarter: 2012Q2

REPORT INFORMATION
  Report Type: 
  Country: None (occurrence: None)
  Receive Date: 20120611
  Receipt Date: 20120607
  Transmission Date: 20120825
  Serious: No
  Sender: FDA-Public Use
  Company Number: US-PFIZER INC-2012137620

PATIENT
  Sex: Male
  Weight: 63.5 kg

DRUGS (6)
  1. LYRICA [Suspect]
     Indication: FIBROMYALGIA
     Dosage: TWO CAPSULE OF 75 MG, 1X/DAY
     Route: 048
     Dates: start: 20111101, end: 20120530
  2. LYRICA [Suspect]
     Indication: RHEUMATOID ARTHRITIS
  3. CYMBALTA [Concomitant]
     Dosage: UNK
  4. FOLIC ACID [Concomitant]
     Dosage: UNK
  5. DURAGESIC-100 [Concomitant]
     Indication: PAIN
     Dosage: UNK
  6. METHOTREXATE [Concomitant]
     Dosage: UNK

REACTIONS (1)
  - HEADACHE [None]
